FAERS Safety Report 8712691 (Version 3)
Quarter: 2012Q4

REPORT INFORMATION
  Report Type: 
  Country: US (occurrence: US)
  Receive Date: 20120808
  Receipt Date: 20121126
  Transmission Date: 20130627
  Serious: Yes (Hospitalization)
  Sender: FDA-Public Use
  Company Number: US-BAYER-2012-077789

PATIENT
  Age: 16 Year
  Sex: Female
  Weight: 45.35 kg

DRUGS (31)
  1. YAZ [Suspect]
     Indication: OVARIAN CYST
     Dosage: UNK
     Dates: start: 20091202, end: 201004
  2. OCELLA [Suspect]
     Indication: OVARIAN CYST
     Dosage: UNK
     Dates: start: 200811, end: 200903
  3. IMMUNGLOBULIN [Concomitant]
     Dosage: 100 g, once a month over 2 days
     Route: 042
  4. DHE [DIHYDROERGOTAMINE MESILATE] [Concomitant]
     Indication: HEADACHE
  5. AMITRIPTYLINE [Concomitant]
     Indication: SLEEP DISORDER NOS
     Dosage: 100 mg, HS
     Route: 048
     Dates: start: 2002
  6. AMITRIPTYLINE [Concomitant]
     Indication: HEADACHE
  7. REGLAN [Concomitant]
     Indication: HEADACHE
  8. TOPAMAX [Concomitant]
     Dosage: 25 mg, hour of sleep
     Route: 048
  9. ACETAMINOPHEN W/CODEINE [Concomitant]
     Dosage: 20 mg, UNK
  10. CITALOPRAM [Concomitant]
     Dosage: 20 mg, QD
     Route: 048
  11. FLUTICASONE W/SALMETEROL [Concomitant]
     Dosage: 1 puff(s), BID
     Route: 045
  12. CELLCEPT [Concomitant]
     Indication: IMMUNE SYSTEM DISORDER
     Dosage: 500 mg, every 12 hours
     Route: 048
     Dates: start: 2007
  13. OMEPRAZOLE [Concomitant]
     Dosage: 20 mg, BID
  14. PREDNISONE [Concomitant]
     Dosage: 10 mg, UNK
     Dates: start: 2002
  15. ZOFRAN [Concomitant]
     Dosage: 4 mg, 2-3 times a day
     Route: 048
  16. NEURONTIN [Concomitant]
     Dosage: 800 mg, BID
  17. NEXIUM [Concomitant]
     Dosage: 40 mg, BID
     Route: 048
  18. PHENERGAN [Concomitant]
     Dosage: 25 mg, HS
     Route: 048
  19. XOPENEX [Concomitant]
     Dosage: 1.25 vial/as needed 3-4 times a day
  20. ATROVENT [Concomitant]
     Dosage: 1 vial/as needed 2 times a day
  21. DIAMOX [Concomitant]
     Dosage: 250 mg, every 12 hours with infusion
     Route: 048
  22. MIRALAX [Concomitant]
     Dosage: 8.5 gm/ as needed 2-3 times a day
     Route: 048
  23. CEFPROZIL [Concomitant]
     Dosage: 500 mg, UNK
  24. IMITREX [Concomitant]
     Dosage: 25 mg, UNK
  25. CIPROFLOXACIN [Concomitant]
     Dosage: 500 mg, UNK
  26. ZOMIG [Concomitant]
     Dosage: 2.5 mg, UNK
  27. ADVAIR [Concomitant]
  28. CELEXA [Concomitant]
  29. ELAVIL [Concomitant]
  30. PRILOSEC [Concomitant]
  31. ONDANSETRON [Concomitant]
     Dosage: as needed
     Dates: start: 2008

REACTIONS (9)
  - Pulmonary embolism [None]
  - Jugular vein thrombosis [None]
  - Vena cava thrombosis [None]
  - Emotional distress [None]
  - Pain [None]
  - Injury [None]
  - General physical health deterioration [None]
  - Anxiety [None]
  - Off label use [None]
